FAERS Safety Report 24388919 (Version 1)
Quarter: 2024Q4

REPORT INFORMATION
  Report Type: Spontaneous
  Country: US (occurrence: US)
  Receive Date: 20241002
  Receipt Date: 20241002
  Transmission Date: 20250114
  Serious: No
  Sender: PFIZER
  Company Number: US-PFIZER INC-202400265962

PATIENT
  Sex: Female

DRUGS (1)
  1. ZAVZPRET [Suspect]
     Active Substance: ZAVEGEPANT HYDROCHLORIDE
     Dosage: UNK
     Route: 045
     Dates: start: 20240926, end: 20240926

REACTIONS (3)
  - Nasal discomfort [Unknown]
  - Eye irritation [Unknown]
  - Neck pain [Unknown]

NARRATIVE: CASE EVENT DATE: 20240926
